FAERS Safety Report 5891875-8 (Version None)
Quarter: 2008Q3

REPORT INFORMATION
  Report Type: 
  Country: None (occurrence: None)
  Receive Date: 20080918
  Receipt Date: 20080918
  Transmission Date: 20090109
  Serious: No
  Sender: FDA-Public Use
  Company Number: None

PATIENT
  Age: 66 Year
  Sex: Male
  Weight: 78.9259 kg

DRUGS (1)
  1. INTAL [Suspect]
     Indication: HYPERSENSITIVITY
     Dosage: 2 SPRAYS 3-4 TIMES A DAY

REACTIONS (9)
  - CHEST PAIN [None]
  - DIARRHOEA [None]
  - DIZZINESS [None]
  - FATIGUE [None]
  - FEELING JITTERY [None]
  - HEADACHE [None]
  - PARAESTHESIA [None]
  - STOMACH DISCOMFORT [None]
  - TENSION HEADACHE [None]
